FAERS Safety Report 10100558 (Version 1)
Quarter: 2014Q2

REPORT INFORMATION
  Report Type: Spontaneous
  Country: RU (occurrence: RU)
  Receive Date: 20140423
  Receipt Date: 20140423
  Transmission Date: 20141212
  Serious: Yes (Other)
  Sender: FDA-Public Use
  Company Number: RU-VIIV HEALTHCARE LIMITED-B0987385A

PATIENT
  Sex: Female

DRUGS (4)
  1. LAMIVUDINE-HIV [Suspect]
     Indication: HIV INFECTION
     Route: 065
     Dates: start: 2014
  2. PHOSPHAZIDE [Suspect]
     Indication: HIV INFECTION
     Route: 065
     Dates: start: 2014
  3. REYATAZ [Suspect]
     Indication: HIV INFECTION
     Route: 065
     Dates: start: 2014
  4. RITONAVIR [Suspect]
     Indication: HIV INFECTION
     Route: 065
     Dates: start: 2014

REACTIONS (7)
  - Hyperbilirubinaemia [Not Recovered/Not Resolved]
  - Jaundice [Not Recovered/Not Resolved]
  - Dyspepsia [Not Recovered/Not Resolved]
  - Pain [Not Recovered/Not Resolved]
  - Red blood cell sedimentation rate increased [Not Recovered/Not Resolved]
  - Haemoglobin decreased [Not Recovered/Not Resolved]
  - Pyrexia [Not Recovered/Not Resolved]
